FAERS Safety Report 17855459 (Version 2)
Quarter: 2020Q3

REPORT INFORMATION
  Report Type: Spontaneous
  Country: US (occurrence: US)
  Receive Date: 20200603
  Receipt Date: 20200714
  Transmission Date: 20201103
  Serious: Yes (Death, Hospitalization)
  Sender: FDA-Public Use
  Company Number: NVSC2020US149335

PATIENT
  Age: 59 Year
  Sex: Male
  Weight: 111 kg

DRUGS (1)
  1. LUTATHERA [Suspect]
     Active Substance: LUTETIUM OXODOTREOTIDE LU-177
     Indication: NEUROENDOCRINE TUMOUR
     Dosage: 199.3 MCI
     Route: 042
     Dates: start: 20200409, end: 20200409

REACTIONS (4)
  - Abdominal pain [Fatal]
  - Intestinal ischaemia [Fatal]
  - Small intestinal obstruction [Fatal]
  - Vomiting [Fatal]

NARRATIVE: CASE EVENT DATE: 20200422
